FAERS Safety Report 10619687 (Version 1)
Quarter: 2014Q4

REPORT INFORMATION
  Report Type: Spontaneous
  Country: US (occurrence: US)
  Receive Date: 20141202
  Receipt Date: 20141202
  Transmission Date: 20150529
  Serious: Yes (Other)
  Sender: FDA-Public Use
  Company Number: US-BRISTOL-MYERS SQUIBB COMPANY-21631783

PATIENT
  Age: 64 Year
  Sex: Female
  Weight: 100.68 kg

DRUGS (4)
  1. METFORMIN HCL [Suspect]
     Active Substance: METFORMIN HYDROCHLORIDE
     Dosage: 1DF:1000
     Route: 048
  2. BYETTA [Suspect]
     Active Substance: EXENATIDE
     Indication: TYPE 2 DIABETES MELLITUS
     Route: 058
  3. LEVEMIR [Suspect]
     Active Substance: INSULIN DETEMIR
     Dosage: 1DF:10 UNITS BEDTIME
     Route: 048
  4. NOVOLOG [Suspect]
     Active Substance: INSULIN ASPART
     Dosage: 1DF:8 UNITS SUPPER
     Route: 048

REACTIONS (2)
  - Road traffic accident [Unknown]
  - Spinal compression fracture [Unknown]

NARRATIVE: CASE EVENT DATE: 20130612
